FAERS Safety Report 12522184 (Version 3)
Quarter: 2016Q4

REPORT INFORMATION
  Report Type: Report from Study
  Country: CA (occurrence: CA)
  Receive Date: 20160701
  Receipt Date: 20161111
  Transmission Date: 20170207
  Serious: Yes (Hospitalization, Other)
  Sender: FDA-Public Use
  Company Number: CA-JNJFOC-20160421193

PATIENT
  Age: 41 Year
  Sex: Female
  Weight: 48.9 kg

DRUGS (7)
  1. REMICADE [Suspect]
     Active Substance: INFLIXIMAB
     Indication: CROHN^S DISEASE
     Route: 042
     Dates: start: 20141002
  2. WARFARIN [Concomitant]
     Active Substance: WARFARIN
     Route: 065
  3. EPREX [Concomitant]
     Active Substance: ERYTHROPOIETIN
     Route: 065
  4. DILAUDID [Concomitant]
     Active Substance: HYDROMORPHONE HYDROCHLORIDE
     Route: 065
  5. TACROLIMUS. [Concomitant]
     Active Substance: TACROLIMUS
     Route: 065
  6. MYCOPHENOLATE [Concomitant]
     Active Substance: MYCOPHENOLIC ACID
     Route: 065
  7. REMICADE [Suspect]
     Active Substance: INFLIXIMAB
     Indication: CROHN^S DISEASE
     Route: 042
     Dates: start: 20140807, end: 20160625

REACTIONS (13)
  - Pulmonary thrombosis [Unknown]
  - Lower respiratory tract infection [Unknown]
  - Renal impairment [Not Recovered/Not Resolved]
  - Intracardiac thrombus [Unknown]
  - Mass [Unknown]
  - Pulmonary embolism [Unknown]
  - Congenital cystic kidney disease [Not Recovered/Not Resolved]
  - Kidney transplant rejection [Not Recovered/Not Resolved]
  - Crohn^s disease [Not Recovered/Not Resolved]
  - Urinary tract infection [Unknown]
  - Skin cancer [Unknown]
  - Haemoglobin decreased [Unknown]
  - Kidney infection [Not Recovered/Not Resolved]

NARRATIVE: CASE EVENT DATE: 2016
